FAERS Safety Report 9394925 (Version 1)
Quarter: 2013Q3

REPORT INFORMATION
  Report Type: Spontaneous
  Country: US (occurrence: US)
  Receive Date: 20130711
  Receipt Date: 20130711
  Transmission Date: 20140515
  Serious: No
  Sender: FDA-Public Use
  Company Number: US-B.I. PHARMACEUTICALS,INC./RIDGEFIELD-2013-BI-16918BP

PATIENT
  Age: 63 Year
  Sex: Female
  Weight: 90 kg

DRUGS (15)
  1. COMBIVENT [Suspect]
     Indication: ASTHMA
     Dosage: STRENGTH: 20 MCG / 100 MCG; DAILY DOSE: 80 MCG/ 400 MCG
     Route: 055
     Dates: start: 20130608
  2. MONTELUKAST [Concomitant]
     Indication: ASTHMA
     Dosage: 10 MG
     Route: 048
  3. B-12 [Concomitant]
     Dosage: 1000 MG
     Route: 048
  4. BIOTENE [Concomitant]
     Dosage: 1000 MG
     Route: 048
  5. DEXILANT [Concomitant]
     Indication: GASTROOESOPHAGEAL REFLUX DISEASE
     Dosage: 120 MG
     Route: 048
  6. VITAMIN B6 [Concomitant]
     Dosage: 100 U
     Route: 048
  7. MULTIVITAMIN WITH IRON [Concomitant]
     Route: 048
  8. VITAMIN D [Concomitant]
     Dosage: 1000 U
     Route: 048
  9. COMBIVENT INHALER [Concomitant]
     Indication: ASTHMA
     Route: 055
     Dates: start: 2003, end: 2013
  10. OXYCODONE [Concomitant]
     Indication: NERVE INJURY
     Dosage: STRENGTH: 7.5/325 MG; DAILY DOSE: 45 MG/1950 MG
     Route: 048
  11. CALCIUM [Concomitant]
     Dosage: 600 MG
     Route: 048
  12. FISH OIL [Concomitant]
     Dosage: 1200 MG
     Route: 048
  13. VITAMIN C [Concomitant]
     Dosage: 500 MG
     Route: 048
  14. VITAMIN E [Concomitant]
     Dosage: 400 U
     Route: 048
  15. PROBIOTIC [Concomitant]
     Route: 048

REACTIONS (3)
  - Oropharyngeal pain [Not Recovered/Not Resolved]
  - Off label use [Not Recovered/Not Resolved]
  - Pharyngitis streptococcal [Not Recovered/Not Resolved]
